FAERS Safety Report 4458511-9 (Version None)
Quarter: 2004Q3

REPORT INFORMATION
  Report Type: 
  Country: None (occurrence: None)
  Receive Date: 20040922
  Receipt Date: 20030804
  Transmission Date: 20050211
  Serious: Yes (Hospitalization)
  Sender: FDA-Public Use
  Company Number: US-SHR-03-007602

PATIENT
  Age: 26 Year
  Sex: Female
  Weight: 81.6 kg

DRUGS (9)
  1. BETASERON [Suspect]
     Indication: MULTIPLE SCLEROSIS
     Dosage: 8 MIU, EVERY 2D, SUBCUTANEOUS
     Route: 058
     Dates: start: 20010501, end: 20030401
  2. NEURONTIN [Concomitant]
  3. PROZAC [Concomitant]
  4. DITROPAN [Concomitant]
  5. IMURAN [Concomitant]
  6. METHYLPREDNISOLONE [Concomitant]
  7. AMANTADINE (AMANTADINE) [Concomitant]
  8. ZANAFLEX [Concomitant]
  9. PREDNISONE [Concomitant]

REACTIONS (6)
  - EATING DISORDER [None]
  - INJECTION SITE ABSCESS [None]
  - INJECTION SITE NECROSIS [None]
  - MULTIPLE SCLEROSIS [None]
  - NAUSEA [None]
  - VOMITING [None]
